FAERS Safety Report 7495931-2 (Version None)
Quarter: 2011Q2

REPORT INFORMATION
  Report Type: 
  Country: None (occurrence: None)
  Receive Date: 20110523
  Receipt Date: 20110516
  Transmission Date: 20111010
  Serious: Yes (Hospitalization, Other)
  Sender: FDA-Public Use
  Company Number: GB-ABBOTT-11P-167-0703756-00

PATIENT
  Weight: 72.8 kg

DRUGS (6)
  1. TRAMADOL HCL [Concomitant]
     Indication: PAIN
  2. HUMIRA [Suspect]
     Indication: RHEUMATOID NODULE
  3. QUINE SULPHATE [Concomitant]
     Indication: MUSCLE SPASMS
  4. HUMIRA [Suspect]
     Indication: RHEUMATOID ARTHRITIS
     Route: 058
     Dates: start: 20100517, end: 20101118
  5. NIFEDIPINE [Concomitant]
     Indication: HYPERTENSION
  6. ACETAMINOPHEN [Concomitant]
     Indication: PAIN

REACTIONS (3)
  - LACUNAR INFARCTION [None]
  - ANTIPHOSPHOLIPID ANTIBODIES POSITIVE [None]
  - CEREBROVASCULAR ACCIDENT [None]
